FAERS Safety Report 8347373-5 (Version None)
Quarter: 2012Q2

REPORT INFORMATION
  Report Type: 
  Country: None (occurrence: None)
  Receive Date: 20120509
  Receipt Date: 20120427
  Transmission Date: 20120825
  Serious: Yes (Other)
  Sender: FDA-Public Use
  Company Number: JP-ROCHE-1025193

PATIENT
  Sex: Female
  Weight: 43 kg

DRUGS (14)
  1. LAC-B [Concomitant]
     Indication: DIARRHOEA
     Route: 048
     Dates: start: 20110623
  2. ALFAROL [Concomitant]
     Indication: HYPERPARATHYROIDISM SECONDARY
     Route: 048
     Dates: start: 20110929
  3. ASPIRIN [Concomitant]
     Indication: MESENTERIC ARTERY THROMBOSIS
     Route: 048
     Dates: start: 20110725
  4. BASEN [Concomitant]
     Indication: DIABETES MELLITUS
     Route: 048
     Dates: start: 20111117
  5. ALOGLIPTIN BENZOATE [Concomitant]
     Indication: DIABETES MELLITUS
     Route: 048
     Dates: start: 20110929
  6. NESPO [Suspect]
     Route: 042
     Dates: start: 20110625, end: 20110625
  7. PROMACTA [Concomitant]
     Indication: ZINC DEFICIENCY
     Route: 048
     Dates: start: 20110922, end: 20111128
  8. MIRCERA [Suspect]
     Indication: NEPHROGENIC ANAEMIA
     Route: 042
     Dates: start: 20111122
  9. LANSOPRAZOLE [Concomitant]
     Indication: GASTROOESOPHAGEAL REFLUX DISEASE
     Route: 048
     Dates: start: 20110725
  10. LASIX [Concomitant]
     Indication: RENAL FAILURE CHRONIC
     Route: 048
     Dates: start: 20110628
  11. NESPO [Suspect]
     Indication: NEPHROGENIC ANAEMIA
     Dosage: DOSAGE IS UNCERTAIN.
     Route: 042
     Dates: start: 20110427
  12. NESPO [Suspect]
     Route: 042
     Dates: start: 20110702, end: 20110725
  13. NESPO [Suspect]
     Route: 042
     Dates: start: 20110809, end: 20111112
  14. MUCOSTA [Concomitant]
     Indication: GASTRITIS
     Route: 048
     Dates: start: 20110721

REACTIONS (1)
  - ANAEMIA [None]
